FAERS Safety Report 13611996 (Version 2)
Quarter: 2017Q2

REPORT INFORMATION
  Report Type: Spontaneous
  Country: US (occurrence: US)
  Receive Date: 20170605
  Receipt Date: 20170629
  Transmission Date: 20170830
  Serious: Yes (Death, Hospitalization)
  Sender: FDA-Public Use
  Company Number: US-PFIZER INC-2017241944

PATIENT
  Age: 85 Year
  Sex: Female

DRUGS (2)
  1. IBRANCE [Suspect]
     Active Substance: PALBOCICLIB
     Indication: BREAST CANCER
     Dosage: 20 MG, 1X/DAY
     Dates: start: 201609, end: 20170514
  2. FASLODEX [Concomitant]
     Active Substance: FULVESTRANT
     Dosage: UNK
     Dates: start: 201609, end: 20170504

REACTIONS (4)
  - White blood cell count decreased [Unknown]
  - Neoplasm progression [Fatal]
  - Asthenia [Unknown]
  - Sepsis [Fatal]
